FAERS Safety Report 10631781 (Version 1)
Quarter: 2014Q4

REPORT INFORMATION
  Report Type: Spontaneous
  Country: US (occurrence: US)
  Receive Date: 20141205
  Receipt Date: 20141205
  Transmission Date: 20150529
  Serious: No
  Sender: FDA-Public Use
  Company Number: US-BRISTOL-MYERS SQUIBB COMPANY-21632328

PATIENT
  Age: 67 Year
  Sex: Male
  Weight: 99.77 kg

DRUGS (1)
  1. FARXIGA [Suspect]
     Active Substance: DAPAGLIFLOZIN PROPANEDIOL
     Indication: TYPE 2 DIABETES MELLITUS
     Dates: start: 201408, end: 201411

REACTIONS (5)
  - Blood glucose abnormal [Unknown]
  - Nasopharyngitis [Unknown]
  - Glycosylated haemoglobin decreased [Unknown]
  - Nocturia [Recovered/Resolved]
  - Thirst [Unknown]

NARRATIVE: CASE EVENT DATE: 2014
